FAERS Safety Report 7434397-5 (Version None)
Quarter: 2011Q2

REPORT INFORMATION
  Report Type: 
  Country: None (occurrence: None)
  Receive Date: 20110425
  Receipt Date: 20110411
  Transmission Date: 20111010
  Serious: Yes (Other)
  Sender: FDA-Public Use
  Company Number: PHHY2011GB31510

PATIENT
  Age: 62 Year
  Sex: Male

DRUGS (6)
  1. HOMATROPINE [Concomitant]
     Dosage: 5 %, QID
  2. TAMSULOSIN [Suspect]
     Dosage: UNK
  3. CYCLOPENTOLATE [Suspect]
     Dosage: UNK
  4. TOBRAMYCIN [Suspect]
     Dosage: UNK
  5. DEXAMETHASONE SODIUM PHOSPHATE [Suspect]
     Dosage: UNK
  6. GATIFLOXACIN [Concomitant]
     Dosage: UNK

REACTIONS (5)
  - INTRAOCULAR PRESSURE INCREASED [None]
  - ANGLE CLOSURE GLAUCOMA [None]
  - VOMITING [None]
  - EYE PAIN [None]
  - VISUAL ACUITY REDUCED [None]
